FAERS Safety Report 14152659 (Version 1)
Quarter: 2017Q4

REPORT INFORMATION
  Report Type: Spontaneous
  Country: AR (occurrence: AR)
  Receive Date: 20171102
  Receipt Date: 20171102
  Transmission Date: 20180321
  Serious: Yes (Other)
  Sender: FDA-Public Use
  Company Number: AR-PFIZER INC-2017469292

PATIENT
  Age: 65 Year
  Sex: Female

DRUGS (1)
  1. IBRANCE [Suspect]
     Active Substance: PALBOCICLIB
     Indication: BREAST CANCER METASTATIC
     Dosage: 100 MG, DAILY, CYCLIC (3X1 SCHEME)
     Dates: start: 20170701

REACTIONS (2)
  - Rheumatoid arthritis [Unknown]
  - Pain [Unknown]

NARRATIVE: CASE EVENT DATE: 20171026
